FAERS Safety Report 6830535-3 (Version None)
Quarter: 2010Q3

REPORT INFORMATION
  Report Type: 
  Country: None (occurrence: None)
  Receive Date: 20100712
  Receipt Date: 20100628
  Transmission Date: 20110219
  Serious: Yes (Other)
  Sender: FDA-Public Use
  Company Number: GB-RANBAXY-2010RR-35549

PATIENT

DRUGS (1)
  1. AMOXICILLIN [Suspect]
     Route: 065

REACTIONS (4)
  - ASTHMA [None]
  - COUGH [None]
  - HYPERSENSITIVITY [None]
  - OCCUPATIONAL EXPOSURE TO DRUG [None]
